FAERS Safety Report 7847423 (Version 3)
Quarter: 2013Q4

REPORT INFORMATION
  Report Type: Spontaneous
  Country: FR (occurrence: FR)
  Receive Date: 20110309
  Receipt Date: 20131022
  Transmission Date: 20140711
  Serious: Yes (Death, Hospitalization, Other)
  Sender: FDA-Public Use
  Company Number: FR-BRISTOL-MYERS SQUIBB COMPANY-15591753

PATIENT
  Age: 71 Year
  Sex: Male
  Weight: 75 kg

DRUGS (5)
  1. ERBITUX SOLN FOR INF [Suspect]
     Indication: HEAD AND NECK CANCER
     Dosage: APR-10 -AUG-2010,RECEIVED CETUXIMAB,FLUOROURACIL, PLATINE SALT. MONOTHERAPY OCT-10 LAST INF 15FEB11
     Route: 042
     Dates: start: 20100426, end: 20110220
  2. NEORAL [Concomitant]
  3. CELLCEPT [Concomitant]
  4. AMLOR [Concomitant]
  5. ASPEGIC [Concomitant]

REACTIONS (5)
  - Death [Fatal]
  - Hepatocellular injury [Recovered/Resolved]
  - Chills [Recovering/Resolving]
  - Hyperthermia [Recovering/Resolving]
  - Conjunctivitis [Recovering/Resolving]
